FAERS Safety Report 19035954 (Version 2)
Quarter: 2021Q1

REPORT INFORMATION
  Report Type: Spontaneous
  Country: FR (occurrence: FR)
  Receive Date: 20210321
  Receipt Date: 20210324
  Transmission Date: 20210420
  Serious: Yes (Hospitalization)
  Sender: FDA-Public Use
  Company Number: FR-TEVA-2021-FR-1891270

PATIENT
  Age: 96 Year
  Sex: Female
  Weight: 70 kg

DRUGS (12)
  1. PREGABALINE [Suspect]
     Active Substance: PREGABALIN
     Indication: PRODUCT USED FOR UNKNOWN INDICATION
     Dosage: 75MG?0?100MG
     Route: 048
  2. SERESTA 10 MG, COMPRIME [Suspect]
     Active Substance: OXAZEPAM
     Indication: PRODUCT USED FOR UNKNOWN INDICATION
     Dosage: 1 DF
     Route: 048
  3. IMOVANE [Suspect]
     Active Substance: ZOPICLONE
     Indication: PRODUCT USED FOR UNKNOWN INDICATION
     Dosage: 1 DF
     Route: 048
  4. COMIRNATY [Suspect]
     Active Substance: TOZINAMERAN
     Indication: COVID-19 IMMUNISATION
     Dosage: LEFT DELTOID , 1 DF
     Route: 030
     Dates: start: 20210119, end: 20210119
  5. FUROSEMIDE. [Concomitant]
     Active Substance: FUROSEMIDE
  6. TRIMEBUTINE [Concomitant]
     Active Substance: TRIMEBUTINE
  7. DIFFU K [Concomitant]
     Active Substance: POTASSIUM CHLORIDE
  8. BISOPROLOL (HEMIFUMARATE DE) [Concomitant]
     Active Substance: BISOPROLOL FUMARATE
  9. XARELTO [Concomitant]
     Active Substance: RIVAROXABAN
  10. PANTOPRAZOLE [Concomitant]
     Active Substance: PANTOPRAZOLE
  11. RAMIPRIL. [Concomitant]
     Active Substance: RAMIPRIL
  12. VENTOLINE [Concomitant]
     Active Substance: ALBUTEROL

REACTIONS (2)
  - Hallucination [Not Recovered/Not Resolved]
  - Behaviour disorder [Not Recovered/Not Resolved]

NARRATIVE: CASE EVENT DATE: 20210122
